FAERS Safety Report 8018180-8 (Version None)
Quarter: 2012Q1

REPORT INFORMATION
  Report Type: 
  Country: None (occurrence: None)
  Receive Date: 20120103
  Receipt Date: 20120101
  Transmission Date: 20120608
  Serious: Yes (Other)
  Sender: FDA-Public Use
  Company Number: ES-TEVA-314843ISR

PATIENT
  Age: 31 Year
  Sex: Female

DRUGS (1)
  1. COPAXONE [Suspect]
     Indication: RELAPSING-REMITTING MULTIPLE SCLEROSIS
     Dosage: 20 MILLIGRAM;
     Route: 058
     Dates: start: 20070101

REACTIONS (1)
  - EMBOLIA CUTIS MEDICAMENTOSA [None]
